FAERS Safety Report 19027820 (Version 1)
Quarter: 2021Q1

REPORT INFORMATION
  Report Type: Spontaneous
  Country: GB (occurrence: GB)
  Receive Date: 20210319
  Receipt Date: 20210319
  Transmission Date: 20210420
  Serious: Yes (Hospitalization)
  Sender: FDA-Public Use
  Company Number: GB-B.I. PHARMACEUTICALS,INC./RIDGEFIELD-2021-BI-090220

PATIENT
  Age: 67 Year
  Sex: Female

DRUGS (6)
  1. RAMIPRIL. [Suspect]
     Active Substance: RAMIPRIL
     Indication: ILL-DEFINED DISORDER
  2. FULVESTRANT. [Suspect]
     Active Substance: FULVESTRANT
     Indication: ILL-DEFINED DISORDER
  3. PREGABALIN. [Suspect]
     Active Substance: PREGABALIN
     Indication: ILL-DEFINED DISORDER
  4. FLUOXETINE HYDROCHLORIDE. [Suspect]
     Active Substance: FLUOXETINE HYDROCHLORIDE
     Indication: ILL-DEFINED DISORDER
  5. JARDIANCE [Suspect]
     Active Substance: EMPAGLIFLOZIN
     Indication: ILL-DEFINED DISORDER
  6. PALBOCICLIB [Suspect]
     Active Substance: PALBOCICLIB
     Indication: ILL-DEFINED DISORDER

REACTIONS (1)
  - Liver injury [Recovering/Resolving]
